FAERS Safety Report 7096530-7 (Version None)
Quarter: 2010Q4

REPORT INFORMATION
  Report Type: 
  Country: None (occurrence: None)
  Receive Date: 20101111
  Receipt Date: 20101105
  Transmission Date: 20110411
  Serious: Yes (Death)
  Sender: FDA-Public Use
  Company Number: A0890387A

PATIENT
  Age: 68 Year
  Sex: Male
  Weight: 65.5 kg

DRUGS (6)
  1. PAZOPANIB [Suspect]
     Indication: METASTATIC RENAL CELL CARCINOMA
     Dosage: 800MG PER DAY
     Route: 048
     Dates: start: 20100830, end: 20101021
  2. FENTANYL CITRATE [Concomitant]
     Indication: PAIN
     Dosage: 75MCG EVERY 3 DAYS
     Dates: start: 20100603, end: 20101028
  3. MAGIC MOUTHWASH [Concomitant]
     Indication: PAIN
     Dosage: 5MG FOUR TIMES PER DAY
     Dates: start: 20101022, end: 20101028
  4. MORPHINE [Concomitant]
     Indication: PAIN
     Dosage: 15MG SIX TIMES PER DAY
     Dates: start: 20100603, end: 20101028
  5. RITALIN [Concomitant]
     Indication: DECREASED APPETITE
     Dosage: 10MG TWICE PER DAY
     Dates: start: 20101022, end: 20101028
  6. XANAX [Concomitant]
     Indication: ANXIETY
     Dosage: 1MG FOUR TIMES PER DAY
     Dates: start: 20100603, end: 20101028

REACTIONS (2)
  - BLOOD BILIRUBIN INCREASED [None]
  - DECREASED APPETITE [None]
